FAERS Safety Report 9071168 (Version 1)
Quarter: 2013Q1

REPORT INFORMATION
  Report Type: Report from Study
  Country: US (occurrence: US)
  Receive Date: 20130129
  Receipt Date: 20130129
  Transmission Date: 20140127
  Serious: No
  Sender: FDA-Public Use
  Company Number: US-ABBOTT-12P-163-0924836-00

PATIENT
  Sex: Female

DRUGS (2)
  1. HUMIRA 40 MG/ 0.8 ML PRE-FILLED SYRINGE [Suspect]
     Indication: RHEUMATOID ARTHRITIS
     Dosage: EVERY OTHER WEEK FOR 12 WEEKS
     Route: 058
  2. HUMIRA 40 MG/ 0.8 ML PRE-FILLED SYRINGE [Suspect]
     Dosage: 40MG/0.8ML PFS 2/PER BOX
     Dates: start: 201201

REACTIONS (3)
  - Gastroenteritis viral [Recovered/Resolved]
  - Upper respiratory tract infection [Recovered/Resolved]
  - Conjunctivitis infective [Recovered/Resolved]
